FAERS Safety Report 9477894 (Version 1)
Quarter: 2013Q3

REPORT INFORMATION
  Report Type: Spontaneous
  Country: US (occurrence: None)
  Receive Date: 20130826
  Receipt Date: 20130826
  Transmission Date: 20140515
  Serious: No
  Sender: FDA-Public Use
  Company Number: None

PATIENT
  Age: 53 None
  Sex: Female

DRUGS (1)
  1. ENBREL [Suspect]
     Route: 058
     Dates: start: 20130711, end: 201308

REACTIONS (1)
  - Rubber sensitivity [None]
